FAERS Safety Report 11058064 (Version 1)
Quarter: 2015Q2

REPORT INFORMATION
  Report Type: Spontaneous
  Country: US (occurrence: None)
  Receive Date: 20150422
  Receipt Date: 20150422
  Transmission Date: 20150821
  Serious: Yes (Death, Hospitalization)
  Sender: FDA-Public Use
  Company Number: None

PATIENT
  Age: 84 Year
  Sex: Male

DRUGS (1)
  1. NEXAVAR [Suspect]
     Active Substance: SORAFENIB
     Indication: HEPATOCELLULAR CARCINOMA
     Route: 048
     Dates: start: 20150228, end: 20150306

REACTIONS (6)
  - Abdominal distension [None]
  - Chest pain [None]
  - Fatigue [None]
  - Abdominal pain [None]
  - Hepatic enzyme increased [None]
  - Decreased appetite [None]

NARRATIVE: CASE EVENT DATE: 201502
